FAERS Safety Report 22243845 (Version 1)
Quarter: 2023Q2

REPORT INFORMATION
  Report Type: Spontaneous
  Country: BR (occurrence: BR)
  Receive Date: 20230424
  Receipt Date: 20230424
  Transmission Date: 20230722
  Serious: Yes (Hospitalization, Other)
  Sender: FDA-Public Use
  Company Number: BR-ABBVIE-4737281

PATIENT
  Age: 90 Year
  Sex: Female
  Weight: 74 kg

DRUGS (4)
  1. RINVOQ [Suspect]
     Active Substance: UPADACITINIB
     Indication: Osteoarthritis
     Dosage: 1 TABLET
     Route: 048
  2. LOSARTAN [Concomitant]
     Active Substance: LOSARTAN
     Indication: Blood pressure fluctuation
     Route: 048
     Dates: end: 202302
  3. FUROSEMIDE [Concomitant]
     Active Substance: FUROSEMIDE
     Indication: Blood pressure fluctuation
     Dosage: 1 TABLET
     Dates: start: 202302
  4. FUROSEMIDE [Concomitant]
     Active Substance: FUROSEMIDE
     Indication: Blood pressure fluctuation
     Dosage: 2 TABLET

REACTIONS (6)
  - Haemorrhagic stroke [Recovering/Resolving]
  - Hepatic vascular thrombosis [Unknown]
  - Blood pressure increased [Recovered/Resolved]
  - Intracardiac thrombus [Unknown]
  - Thrombosis [Recovered/Resolved]
  - Pulmonary thrombosis [Unknown]

NARRATIVE: CASE EVENT DATE: 20220801
